FAERS Safety Report 9171461 (Version 3)
Quarter: 2013Q3

REPORT INFORMATION
  Report Type: Report from Study
  Country: JP (occurrence: JP)
  Receive Date: 20130319
  Receipt Date: 20130708
  Transmission Date: 20140515
  Serious: Yes (Death)
  Sender: FDA-Public Use
  Company Number: JP-ASTRAZENECA-2013SE17364

PATIENT
  Age: 82 Year
  Sex: Male
  Weight: 49 kg

DRUGS (11)
  1. SYMBICORT TURBUHALER [Suspect]
     Indication: CHRONIC OBSTRUCTIVE PULMONARY DISEASE
     Route: 055
     Dates: start: 20130201, end: 20130221
  2. WARFARIN [Concomitant]
     Indication: ATRIAL FIBRILLATION
     Route: 048
     Dates: end: 20130210
  3. DIGOSIN [Concomitant]
     Indication: CARDIAC FAILURE CONGESTIVE
     Route: 048
     Dates: end: 20130221
  4. VASOLAN [Concomitant]
     Indication: ATRIAL FIBRILLATION
     Route: 048
     Dates: end: 20130221
  5. PARIET [Concomitant]
     Indication: GASTROOESOPHAGEAL REFLUX DISEASE
     Route: 048
     Dates: end: 20130221
  6. DEPAKENE-R [Concomitant]
     Indication: CANCER PAIN
     Route: 048
     Dates: end: 20130221
  7. GABAPEN [Concomitant]
     Indication: CANCER PAIN
     Route: 048
     Dates: end: 20130221
  8. RINDERON [Concomitant]
     Indication: CANCER PAIN
     Route: 048
     Dates: end: 20130221
  9. VOLTAREN [Concomitant]
     Indication: CANCER PAIN
     Route: 054
     Dates: end: 20130209
  10. FENTOS [Concomitant]
     Indication: CANCER PAIN
     Route: 062
     Dates: end: 20130222
  11. SOLANAX [Concomitant]
     Indication: DEPRESSIVE SYMPTOM
     Route: 048
     Dates: end: 20130221

REACTIONS (3)
  - Disease progression [Fatal]
  - Pneumonia [Fatal]
  - Dehydration [Fatal]
